FAERS Safety Report 4926733-6 (Version None)
Quarter: 2006Q1

REPORT INFORMATION
  Report Type: 
  Country: None (occurrence: None)
  Receive Date: 20060228
  Receipt Date: 20050606
  Transmission Date: 20060701
  Serious: Yes (Other)
  Sender: FDA-Public Use
  Company Number: US-GLAXOSMITHKLINE-A0561386A

PATIENT
  Age: 58 Year
  Sex: Male

DRUGS (4)
  1. LAMICTAL [Suspect]
     Indication: BIPOLAR DISORDER
     Route: 048
     Dates: start: 20050507
  2. NARDIL [Concomitant]
  3. LITHIUM [Concomitant]
  4. SYNTHROID [Concomitant]

REACTIONS (2)
  - URINARY INCONTINENCE [None]
  - URINE OUTPUT INCREASED [None]
